FAERS Safety Report 9668750 (Version 1)
Quarter: 2013Q4

REPORT INFORMATION
  Report Type: Spontaneous
  Country: US (occurrence: None)
  Receive Date: 20131104
  Receipt Date: 20131104
  Transmission Date: 20140711
  Serious: No
  Sender: FDA-Public Use
  Company Number: None

PATIENT
  Age: 75 Year
  Sex: Female
  Weight: 98.4 kg

DRUGS (9)
  1. PHENYTOIN [Suspect]
     Indication: CONVULSION
     Route: 048
     Dates: start: 20130924, end: 20130926
  2. BENZTROPINE [Concomitant]
  3. OLANZAPINE ZYDUS [Concomitant]
  4. CETIRIZINE [Concomitant]
  5. BISACODYL [Concomitant]
  6. OMEPRAZOLE [Concomitant]
  7. AUGMENTIN [Concomitant]
  8. HALDOL DECANOATE [Concomitant]
  9. ACETAMINOPHEN [Concomitant]

REACTIONS (2)
  - Aspartate aminotransferase increased [None]
  - Alanine aminotransferase increased [None]
